FAERS Safety Report 6147517-X (Version None)
Quarter: 2009Q2

REPORT INFORMATION
  Report Type: 
  Country: None (occurrence: None)
  Receive Date: 20090406
  Receipt Date: 20090327
  Transmission Date: 20091009
  Serious: Yes (Death)
  Sender: FDA-Public Use
  Company Number: 2009-193910-NL

PATIENT
  Age: 38 Year
  Sex: Female

DRUGS (3)
  1. MARVELON [Suspect]
     Indication: ENDOMETRIOSIS
     Dosage: DF ORAL
     Route: 048
     Dates: start: 20090217, end: 20090309
  2. NORETHISTERONE W/ESTROGENS [Concomitant]
  3. UNSPECIFIED DRUG [Concomitant]

REACTIONS (3)
  - FALL [None]
  - MENTAL DISORDER [None]
  - PULMONARY EMBOLISM [None]
